FAERS Safety Report 4667056-2 (Version None)
Quarter: 2005Q2

REPORT INFORMATION
  Report Type: 
  Country: None (occurrence: None)
  Receive Date: 20050520
  Receipt Date: 20041208
  Transmission Date: 20051028
  Serious: Yes (Other)
  Sender: FDA-Public Use
  Company Number: PHEH2004US13145

PATIENT
  Age: 64 Year
  Sex: Female

DRUGS (4)
  1. AREDIA [Suspect]
     Indication: MULTIPLE MYELOMA
     Dates: start: 19990101
  2. ALLOPURINOL [Concomitant]
  3. CALCITRIOL [Concomitant]
  4. DEXAMETHASONE [Concomitant]

REACTIONS (7)
  - BONE DISORDER [None]
  - DENTAL TREATMENT [None]
  - MOUTH HAEMORRHAGE [None]
  - ORAL PAIN [None]
  - OSTEONECROSIS [None]
  - TOOTH EXTRACTION [None]
  - WOUND DEBRIDEMENT [None]
